FAERS Safety Report 12289015 (Version 1)
Quarter: 2016Q2

REPORT INFORMATION
  Report Type: Spontaneous
  Country: TW (occurrence: TW)
  Receive Date: 20160421
  Receipt Date: 20160421
  Transmission Date: 20160815
  Serious: Yes (Other)
  Sender: FDA-Public Use
  Company Number: TW-INVENTIA-000109

PATIENT
  Age: 85 Year
  Sex: Male

DRUGS (3)
  1. DULOXETINE. [Suspect]
     Active Substance: DULOXETINE
     Indication: MAJOR DEPRESSION
     Dosage: UP-TITRATED THE DOSAGE FROM 30 MG DAILY TO 60 MG DAILY FOR 10 DAYS
  2. BUPROPION XL [Interacting]
     Active Substance: BUPROPION
     Indication: MAJOR DEPRESSION
     Dosage: STRENGTH: 150 MG
  3. ESTAZOLAM. [Suspect]
     Active Substance: ESTAZOLAM
     Indication: INSOMNIA

REACTIONS (5)
  - Drug interaction [Unknown]
  - Delirium [Recovered/Resolved]
  - Hallucinations, mixed [Recovered/Resolved]
  - Disorientation [Recovered/Resolved]
  - Persecutory delusion [Recovered/Resolved]
